FAERS Safety Report 25320278 (Version 1)
Quarter: 2025Q2

REPORT INFORMATION
  Report Type: Spontaneous
  Country: PL (occurrence: PL)
  Receive Date: 20250515
  Receipt Date: 20250515
  Transmission Date: 20250716
  Serious: Yes (Hospitalization, Other)
  Sender: MYLAN
  Company Number: PL-SANDOZ-SDZ2025PL026770

PATIENT
  Age: 59 Year
  Sex: Male

DRUGS (40)
  1. IMATINIB [Suspect]
     Active Substance: IMATINIB
     Indication: Product used for unknown indication
  2. IMATINIB [Suspect]
     Active Substance: IMATINIB
     Route: 065
  3. IMATINIB [Suspect]
     Active Substance: IMATINIB
     Route: 065
  4. IMATINIB [Suspect]
     Active Substance: IMATINIB
  5. DASATINIB [Suspect]
     Active Substance: DASATINIB
     Indication: Product used for unknown indication
     Dosage: 50 MILLIGRAM, QD
  6. DASATINIB [Suspect]
     Active Substance: DASATINIB
     Dosage: 50 MILLIGRAM, QD
  7. DASATINIB [Suspect]
     Active Substance: DASATINIB
     Dosage: 50 MILLIGRAM, QD
     Route: 065
  8. DASATINIB [Suspect]
     Active Substance: DASATINIB
     Dosage: 50 MILLIGRAM, QD
     Route: 065
  9. DASATINIB [Suspect]
     Active Substance: DASATINIB
     Dosage: 50 MILLIGRAM, QD (EVERY 2 DAY)
  10. DASATINIB [Suspect]
     Active Substance: DASATINIB
     Dosage: 50 MILLIGRAM, QD (EVERY 2 DAY)
  11. DASATINIB [Suspect]
     Active Substance: DASATINIB
     Dosage: 50 MILLIGRAM, QD (EVERY 2 DAY)
     Route: 065
  12. DASATINIB [Suspect]
     Active Substance: DASATINIB
     Dosage: 50 MILLIGRAM, QD (EVERY 2 DAY)
     Route: 065
  13. DASATINIB [Suspect]
     Active Substance: DASATINIB
     Dosage: 50 MILLIGRAM, QD (50 MG/D EVERY 3RD DAY)
  14. DASATINIB [Suspect]
     Active Substance: DASATINIB
     Dosage: 50 MILLIGRAM, QD (50 MG/D EVERY 3RD DAY)
     Route: 065
  15. DASATINIB [Suspect]
     Active Substance: DASATINIB
     Dosage: 50 MILLIGRAM, QD (50 MG/D EVERY 3RD DAY)
  16. DASATINIB [Suspect]
     Active Substance: DASATINIB
     Dosage: 50 MILLIGRAM, QD (50 MG/D EVERY 3RD DAY)
     Route: 065
  17. AZACITIDINE [Suspect]
     Active Substance: AZACITIDINE
     Indication: Product used for unknown indication
  18. AZACITIDINE [Suspect]
     Active Substance: AZACITIDINE
     Route: 065
  19. AZACITIDINE [Suspect]
     Active Substance: AZACITIDINE
     Route: 065
  20. AZACITIDINE [Suspect]
     Active Substance: AZACITIDINE
  21. HYDROXYUREA [Suspect]
     Active Substance: HYDROXYUREA
     Indication: Product used for unknown indication
  22. HYDROXYUREA [Suspect]
     Active Substance: HYDROXYUREA
     Route: 065
  23. HYDROXYUREA [Suspect]
     Active Substance: HYDROXYUREA
     Route: 065
  24. HYDROXYUREA [Suspect]
     Active Substance: HYDROXYUREA
  25. PONATINIB [Suspect]
     Active Substance: PONATINIB
     Indication: Product used for unknown indication
     Dosage: 45 MILLIGRAM, QD
  26. PONATINIB [Suspect]
     Active Substance: PONATINIB
     Dosage: 45 MILLIGRAM, QD
     Route: 065
  27. PONATINIB [Suspect]
     Active Substance: PONATINIB
     Dosage: 45 MILLIGRAM, QD
     Route: 065
  28. PONATINIB [Suspect]
     Active Substance: PONATINIB
     Dosage: 45 MILLIGRAM, QD
  29. ENOXAPARIN SODIUM [Suspect]
     Active Substance: ENOXAPARIN SODIUM
     Indication: Product used for unknown indication
     Dosage: 40 MILLIGRAM, QD
  30. ENOXAPARIN SODIUM [Suspect]
     Active Substance: ENOXAPARIN SODIUM
     Dosage: 40 MILLIGRAM, QD
     Route: 065
  31. ENOXAPARIN SODIUM [Suspect]
     Active Substance: ENOXAPARIN SODIUM
     Dosage: 40 MILLIGRAM, QD
     Route: 065
  32. ENOXAPARIN SODIUM [Suspect]
     Active Substance: ENOXAPARIN SODIUM
     Dosage: 40 MILLIGRAM, QD
  33. ELIQUIS [Suspect]
     Active Substance: APIXABAN
     Indication: Product used for unknown indication
  34. ELIQUIS [Suspect]
     Active Substance: APIXABAN
     Route: 065
  35. ELIQUIS [Suspect]
     Active Substance: APIXABAN
     Route: 065
  36. ELIQUIS [Suspect]
     Active Substance: APIXABAN
  37. VIDAZA [Suspect]
     Active Substance: AZACITIDINE
     Indication: Product used for unknown indication
  38. VIDAZA [Suspect]
     Active Substance: AZACITIDINE
     Route: 065
  39. VIDAZA [Suspect]
     Active Substance: AZACITIDINE
     Route: 065
  40. VIDAZA [Suspect]
     Active Substance: AZACITIDINE

REACTIONS (8)
  - Myeloid leukaemia [Unknown]
  - Thrombocytopenia [Unknown]
  - Anaemia [Unknown]
  - Neutropenia [Unknown]
  - Leukocytosis [Unknown]
  - Night sweats [Unknown]
  - Asthenia [Unknown]
  - Pyrexia [Unknown]
